FAERS Safety Report 19318864 (Version 1)
Quarter: 2021Q2

REPORT INFORMATION
  Report Type: Spontaneous
  Country: US (occurrence: US)
  Receive Date: 20210527
  Receipt Date: 20210527
  Transmission Date: 20210717
  Serious: Yes (Other)
  Sender: FDA-Public Use
  Company Number: None

PATIENT
  Age: 39 Year
  Sex: Female

DRUGS (8)
  1. AIMOVIG [Suspect]
     Active Substance: ERENUMAB-AOOE
     Dosage: ?          OTHER FREQUENCY:Q MONTH;?
     Route: 058
  2. SUMATRIPTAN 100 MG [Concomitant]
     Active Substance: SUMATRIPTAN
  3. TOPIRAMATE 50MG [Concomitant]
     Active Substance: TOPIRAMATE
  4. ALEVE [Concomitant]
     Active Substance: NAPROXEN SODIUM
  5. EXCEDRIN MIGRAINE TABLETS [Concomitant]
  6. MAGNESIUM 200MG TABLETS [Concomitant]
  7. MULTIVITAMIN TABLET [Concomitant]
  8. VITAMIN B COMPLEX [Concomitant]
     Active Substance: CYANOCOBALAMIN\DEXPANTHENOL\NIACINAMIDE\PYRIDOXINE HYDROCHLORIDE\RIBOFLAVIN 5^-PHOSPHATE SODIUM\THIAMINE HYDROCHLORIDE\VITAMIN B COMPLEX

REACTIONS (2)
  - Syringe issue [None]
  - Incorrect dose administered by device [None]

NARRATIVE: CASE EVENT DATE: 20210525
